FAERS Safety Report 9671945 (Version 5)
Quarter: 2014Q2

REPORT INFORMATION
  Report Type: Spontaneous
  Country: US (occurrence: US)
  Receive Date: 20131106
  Receipt Date: 20140609
  Transmission Date: 20141212
  Serious: Yes (Other)
  Sender: FDA-Public Use
  Company Number: US-UCBSA-102131

PATIENT
  Sex: Female
  Weight: 88.45 kg

DRUGS (32)
  1. CIMZIA [Suspect]
     Indication: CROHN^S DISEASE
     Dosage: 200 MG, EV 2 WEEKS(QOW)
     Route: 058
     Dates: start: 20110603, end: 201310
  2. CIMZIA [Suspect]
     Dosage: UNK
     Dates: start: 20131111
  3. CIMZIA [Suspect]
     Indication: CROHN^S DISEASE
     Dosage: TAKING  ALITLE OVER A YEAR
  4. GABAPENTIN [Concomitant]
     Indication: NEURALGIA
     Dosage: 300 MG, 3X/DAY (TID)
     Route: 048
  5. PERCOCET [Concomitant]
     Indication: PAIN
  6. VITAMIN D/D3 [Concomitant]
     Indication: VITAMIN SUPPLEMENTATION
     Dosage: 1000 MG, ONCE DAILY (QD)
  7. CALCIUM WITH VITAMIN D [Concomitant]
  8. VITAMIN E [Concomitant]
  9. VITAMIN C [Concomitant]
     Indication: VITAMIN SUPPLEMENTATION
     Dosage: (2) 500 MG
  10. ADVIL PM [Concomitant]
     Indication: PAIN
     Dosage: 800 MG, AS NEEDED (PRN)
     Route: 048
  11. DIFLUCAN [Concomitant]
     Dosage: AS NEEDED
  12. FLEXIRAL [Concomitant]
     Indication: MUSCLE RELAXANT THERAPY
     Dosage: 10 MG, 4X/DAY (QID)
     Route: 048
  13. PROSAC [Concomitant]
     Indication: NAUSEA
     Dosage: 10 MG, ONCE DAILY (QD)
     Route: 048
  14. OPIUM [Concomitant]
     Indication: DIARRHOEA
     Dosage: LIQUID PRN, 10 MG/ML ,10 DROPS PER STOOL
     Route: 048
  15. AMBIEN [Concomitant]
     Indication: SLEEP DISORDER
     Dosage: QPM
     Route: 048
  16. ATIVAN [Concomitant]
     Indication: ANXIETY
     Dosage: 1 MG, 3X/DAY (TID)
     Route: 048
  17. COMPAZINE [Concomitant]
     Dosage: PRN
  18. MECLAZINE [Concomitant]
     Indication: DIZZINESS
     Dosage: EVERY 6 HOURS
     Route: 048
  19. ZOCOR [Concomitant]
     Indication: BLOOD CHOLESTEROL
     Dosage: 40 MG, ONCE DAILY (QD)
     Route: 048
  20. PRILOSEC [Concomitant]
     Indication: HYPERCHLORHYDRIA
     Dosage: 40 MG, ONCE DAILY (QD)
     Route: 048
  21. NAPROXEN [Concomitant]
     Indication: PAIN
     Dosage: 500 MG, AS NEEDED (PRN)
     Route: 048
  22. ACYCLOVIR [Concomitant]
     Indication: HERPES ZOSTER
     Dosage: 5 %, 5X/DAY
  23. NASONEX [Concomitant]
     Indication: HYPERSENSITIVITY
     Dosage: UNK UNK, ONCE DAILY (QD)
     Route: 045
  24. FISH OIL [Concomitant]
     Indication: SUPPLEMENTATION THERAPY
     Dosage: UNK UNK, ONCE DAILY (QD)
     Route: 048
  25. CINAMMON [Concomitant]
     Indication: BLOOD GLUCOSE
     Dosage: 1000 MG, ONCE DAILY (QD)
     Route: 048
  26. BILBERI [Concomitant]
     Indication: EYE DISORDER
     Dosage: 1000 MG, ONCE DAILY (QD)
     Route: 048
  27. GREEN TEA [Concomitant]
     Indication: NUTRITIONAL SUPPLEMENTATION
     Dosage: 300 MG, ONCE DAILY (QD)
     Route: 048
  28. CRANBERRY [Concomitant]
     Indication: EYE DISORDER
     Dosage: 500 MG, ONCE DAILY (QD)
     Route: 048
  29. CALCIUM [Concomitant]
     Indication: MINERAL SUPPLEMENTATION
     Dosage: 600 MG, ONCE DAILY (QD)
     Route: 048
  30. PROCHLORPERAZINE [Concomitant]
     Indication: NAUSEA
     Dosage: 10 MG, AS NEEDED (PRN)
     Route: 048
  31. B12 [Concomitant]
     Indication: VITAMIN SUPPLEMENTATION
     Dosage: 2500 MG, ONCE DAILY (QD)
  32. ASA [Concomitant]
     Indication: ISCHAEMIC HEART DISEASE PROPHYLAXIS
     Dosage: 325 MG, ONCE DAILY (QD)

REACTIONS (4)
  - Herpes zoster [Recovered/Resolved]
  - Ophthalmic herpes zoster [Recovered/Resolved]
  - Musculoskeletal disorder [Not Recovered/Not Resolved]
  - Pain in extremity [Not Recovered/Not Resolved]
